FAERS Safety Report 5256076-5 (Version None)
Quarter: 2007Q1

REPORT INFORMATION
  Report Type: 
  Country: None (occurrence: None)
  Receive Date: 20070306
  Receipt Date: 20070228
  Transmission Date: 20070707
  Serious: Yes (Death, Hospitalization, Other)
  Sender: FDA-Public Use
  Company Number: 2006UW21583

PATIENT
  Age: 50 Year
  Sex: Female
  Weight: 125 kg

DRUGS (2)
  1. SEROQUEL [Suspect]
     Indication: DEPRESSION
     Route: 048
     Dates: end: 20051018
  2. THORAZINE [Concomitant]

REACTIONS (3)
  - DEATH [None]
  - DIABETES MELLITUS [None]
  - DIABETIC COMA [None]
